FAERS Safety Report 10244487 (Version 1)
Quarter: 2014Q2

REPORT INFORMATION
  Report Type: Spontaneous
  Country: DE (occurrence: None)
  Receive Date: 20140616
  Receipt Date: 20140616
  Transmission Date: 20141212
  Serious: Yes (Other)
  Sender: FDA-Public Use
  Company Number: AUR-APL-2014-06291

PATIENT
  Age: 37 Year
  Sex: Male
  Weight: 96.3 kg

DRUGS (3)
  1. MIRTAZAPINE 15MG (MIRTAZAPINE) UNKNOWN, 15MG [Suspect]
     Indication: PRODUCT USED FOR UNKNOWN INDICATION
     Route: 048
     Dates: start: 20131202, end: 20131203
  2. TREVILOR (VENLAFAXINE HYDROCHLORIDE) [Suspect]
     Route: 048
     Dates: start: 20131205, end: 20131210
  3. ZYPREXA (OLANZAPINE) [Suspect]
     Indication: PRODUCT USED FOR UNKNOWN INDICATION
     Route: 048
     Dates: start: 20131216, end: 20140109

REACTIONS (2)
  - Hyperlipidaemia [None]
  - Weight increased [None]
